FAERS Safety Report 9185387 (Version 1)
Quarter: 2013Q1

REPORT INFORMATION
  Report Type: Spontaneous
  Country: US (occurrence: US)
  Receive Date: 20130325
  Receipt Date: 20130325
  Transmission Date: 20140127
  Serious: No
  Sender: FDA-Public Use
  Company Number: US-BIOGENIDEC-2013BI025182

PATIENT
  Sex: Male

DRUGS (2)
  1. TYSABRI [Suspect]
     Indication: MULTIPLE SCLEROSIS
     Route: 042
     Dates: start: 20120112
  2. AVONEX [Concomitant]
     Indication: MULTIPLE SCLEROSIS
     Route: 030
     Dates: start: 20110302

REACTIONS (8)
  - Gait disturbance [Unknown]
  - Dysarthria [Unknown]
  - Depressed mood [Unknown]
  - Central nervous system lesion [Unknown]
  - Asthenia [Unknown]
  - Rash generalised [Unknown]
  - Multiple sclerosis relapse [Unknown]
  - Fatigue [Unknown]
